FAERS Safety Report 7047388-3 (Version None)
Quarter: 2010Q4

REPORT INFORMATION
  Report Type: 
  Country: None (occurrence: None)
  Receive Date: 20101015
  Receipt Date: 20101007
  Transmission Date: 20110411
  Serious: Yes (Hospitalization)
  Sender: FDA-Public Use
  Company Number: DK-NAPPMUNDI-DEU-2010-0006592

PATIENT
  Sex: Female

DRUGS (8)
  1. HYDROMORPHONE HCL [Suspect]
     Indication: BACK PAIN
     Dosage: 20 MG, DAILY
     Route: 048
     Dates: start: 20100917
  2. HYDROMORPHONE HCL [Suspect]
     Indication: CONSTIPATION
     Dosage: 16 MG, DAILY
     Route: 048
     Dates: start: 20100911, end: 20100916
  3. HYDROMORPHONE HCL [Suspect]
     Dosage: 12 MG, DAILY
     Route: 048
     Dates: start: 20100910, end: 20100910
  4. HYDROMORPHONE HCL [Suspect]
     Dosage: 8 MG, DAILY
     Route: 048
     Dates: start: 20100904, end: 20100909
  5. HYDROMORPHONE HCL [Suspect]
     Dosage: 4 MG, DAILY
     Route: 048
     Dates: start: 20100903, end: 20100903
  6. METOPROLOL SUCCINATE [Concomitant]
  7. LYRICA [Concomitant]
  8. RAMIPRIL [Concomitant]

REACTIONS (1)
  - MALAISE [None]
